FAERS Safety Report 5620744-3 (Version None)
Quarter: 2008Q1

REPORT INFORMATION
  Report Type: 
  Country: None (occurrence: None)
  Receive Date: 20080208
  Receipt Date: 20080124
  Transmission Date: 20080703
  Serious: Yes (Hospitalization)
  Sender: FDA-Public Use
  Company Number: JP-ELI_LILLY_AND_COMPANY-JP200712000832

PATIENT
  Sex: Female
  Weight: 54 kg

DRUGS (19)
  1. PEMETREXED [Suspect]
     Indication: PLEURAL MESOTHELIOMA MALIGNANT
     Dosage: 500 MG, OTHER
     Route: 042
     Dates: start: 20070418, end: 20070418
  2. PEMETREXED [Suspect]
     Dosage: 400 MG, OTHER
     Route: 042
     Dates: start: 20070914, end: 20070914
  3. CISPLATIN [Suspect]
     Indication: PLEURAL MESOTHELIOMA MALIGNANT
     Dosage: 80 MG, OTHER
     Route: 042
     Dates: start: 20070418, end: 20070418
  4. CISPLATIN [Suspect]
     Dosage: 60 MG, OTHER
     Route: 042
     Dates: start: 20070914, end: 20070914
  5. PANVITAN [Concomitant]
     Dosage: 1 G, DAILY (1/D)
     Route: 048
     Dates: start: 20070410, end: 20071009
  6. HYDROXOCOBALAMIN ACETATE [Concomitant]
     Dosage: 1 MG, DAILY (1/D)
     Route: 030
     Dates: start: 20070410, end: 20070907
  7. GASTER D [Concomitant]
     Indication: PROPHYLAXIS
     Dosage: 10 MG, DAILY (1/D)
     Route: 048
     Dates: start: 20070417, end: 20070730
  8. BASEN [Concomitant]
     Indication: DIABETES MELLITUS
     Dosage: 0.9 MG, DAILY (1/D)
     Route: 048
     Dates: start: 20070418
  9. LOXONIN [Concomitant]
     Indication: CANCER PAIN
     Dosage: 180 MG, DAILY (1/D)
     Route: 048
     Dates: start: 20070727, end: 20070916
  10. SELBEX [Concomitant]
     Indication: PROPHYLAXIS
     Dosage: 150 MG, DAILY (1/D)
     Route: 048
     Dates: start: 20070803, end: 20070831
  11. DOGMATYL [Concomitant]
     Indication: PROPHYLAXIS
     Dosage: 150 MG, DAILY (1/D)
     Route: 048
     Dates: start: 20070827
  12. CODEINE PHOSPHATE [Concomitant]
     Indication: PROPHYLAXIS
     Dosage: 40 MG, DAILY (1/D)
     Route: 048
     Dates: start: 20070827, end: 20070913
  13. VOLTAREN /00372301/ [Concomitant]
     Indication: CANCER PAIN
     Dosage: 75 MG, DAILY (1/D)
     Route: 048
     Dates: start: 20070827, end: 20070912
  14. OXYCONTIN [Concomitant]
     Indication: CANCER PAIN
     Dosage: 10 MG, DAILY (1/D)
     Route: 048
     Dates: start: 20070831, end: 20070916
  15. MOBIC [Concomitant]
     Indication: CANCER PAIN
     Dosage: 10 MG, AS NEEDED
     Route: 048
     Dates: start: 20070910, end: 20070922
  16. ZOFRAN ZYDIS [Concomitant]
     Indication: PROPHYLAXIS
     Dosage: 4 MG, DAILY (1/D)
     Route: 048
     Dates: start: 20070915, end: 20070919
  17. DUROTEP [Concomitant]
     Indication: CANCER PAIN
     Dosage: 2.5 MG, DAILY (1/D)
     Route: 062
     Dates: start: 20070926
  18. KYTRIL [Concomitant]
     Indication: PROPHYLAXIS
     Dosage: 100 MG, DAILY (1/D)
     Route: 042
     Dates: start: 20070418, end: 20070714
  19. MORPHINE HCL ELIXIR [Concomitant]
     Indication: CANCER PAIN
     Dosage: 40 MG, DAILY (1/D)
     Route: 042
     Dates: start: 20070920

REACTIONS (5)
  - DECREASED APPETITE [None]
  - HYPERCALCAEMIA [None]
  - HYPERKALAEMIA [None]
  - HYPONATRAEMIA [None]
  - WHITE BLOOD CELL COUNT DECREASED [None]
